FAERS Safety Report 8070603-4 (Version None)
Quarter: 2012Q1

REPORT INFORMATION
  Report Type: 
  Country: None (occurrence: None)
  Receive Date: 20120125
  Receipt Date: 20120112
  Transmission Date: 20120608
  Serious: Yes (Disabling, Other)
  Sender: FDA-Public Use
  Company Number: PHEH2012US000553

PATIENT
  Sex: Female
  Weight: 58 kg

DRUGS (13)
  1. CALCIUM [Concomitant]
     Dosage: 2 DF, DAILY
     Route: 048
     Dates: start: 20110525
  2. TYLENOL-500 [Concomitant]
     Dosage: 1 DF, DAILY
     Route: 048
     Dates: start: 20110525
  3. GAS-X [Concomitant]
     Dosage: 1 DF, DAILY
     Route: 048
     Dates: start: 20110525
  4. VITAMIN D [Concomitant]
     Indication: OSTEOPOROSIS
  5. SANDOSTATIN LAR [Suspect]
     Dosage: 30 MG, EVERY 4 WEEKS
     Dates: start: 20120103
  6. LEVOTHYROXINE SODIUM [Concomitant]
  7. VICODIN [Concomitant]
     Dosage: 1 DF, NIGHTLY
     Route: 048
     Dates: start: 20110525
  8. PREVACID [Concomitant]
     Dosage: 1 DF, DAILY
     Route: 048
     Dates: start: 20110524
  9. ATIVAN [Concomitant]
     Dosage: 0.5 DF, NIGHTLY
     Route: 048
     Dates: start: 20110525
  10. MULTI-VITAMINS [Concomitant]
     Dosage: 1 DF, UNK
     Route: 048
     Dates: start: 20110525
  11. SANDOSTATIN LAR [Suspect]
     Dosage: 30 MG, EVERY 28 DAYS
     Dates: start: 20100501
  12. MELOXICAM [Concomitant]
     Dosage: 1 DF, DAILY
     Route: 048
     Dates: start: 20120103
  13. SYNTHROID [Concomitant]
     Dosage: 1 DF, DAILY
     Route: 048
     Dates: start: 20110525

REACTIONS (31)
  - BLOOD ALKALINE PHOSPHATASE INCREASED [None]
  - CHILLS [None]
  - ABDOMINAL DISTENSION [None]
  - PAIN [None]
  - TEMPERATURE INTOLERANCE [None]
  - JOINT STIFFNESS [None]
  - ALOPECIA [None]
  - DYSPNOEA [None]
  - DRUG INEFFECTIVE [None]
  - GAMMA-GLUTAMYLTRANSFERASE INCREASED [None]
  - NUTRITIONAL CONDITION ABNORMAL [None]
  - WEIGHT GAIN POOR [None]
  - OROPHARYNGEAL PAIN [None]
  - BONE PAIN [None]
  - MEMORY IMPAIRMENT [None]
  - ABDOMINAL PAIN [None]
  - HEPATIC LESION [None]
  - DYSPHONIA [None]
  - SPEECH DISORDER [None]
  - CONSTIPATION [None]
  - ASTHENIA [None]
  - NEOPLASM PROGRESSION [None]
  - WEIGHT DECREASED [None]
  - PALPITATIONS [None]
  - ARTHRALGIA [None]
  - INCREASED TENDENCY TO BRUISE [None]
  - APPETITE DISORDER [None]
  - LACRIMATION INCREASED [None]
  - HYPOAESTHESIA [None]
  - BLOOD THYROID STIMULATING HORMONE DECREASED [None]
  - PRURITUS [None]
